FAERS Safety Report 16919527 (Version 1)
Quarter: 2019Q4

REPORT INFORMATION
  Report Type: Report from Study
  Country: GB (occurrence: GB)
  Receive Date: 20191015
  Receipt Date: 20191015
  Transmission Date: 20200122
  Serious: Yes (Hospitalization, Other)
  Sender: FDA-Public Use
  Company Number: GB-MYLANLABS-2019M1044199

PATIENT
  Age: 49 Year
  Sex: Female

DRUGS (42)
  1. TRASTUZUMAB. [Suspect]
     Active Substance: TRASTUZUMAB
     Dosage: 777 MILLIGRAM, Q3W
     Route: 042
     Dates: start: 20171129, end: 20171129
  2. DOCETAXEL. [Suspect]
     Active Substance: DOCETAXEL
     Dosage: 120 MILLIGRAM, Q3W
     Route: 042
     Dates: start: 20170324, end: 20170627
  3. OXYCODONE [Concomitant]
     Active Substance: OXYCODONE
     Indication: PAIN
     Dosage: UNK
     Route: 048
     Dates: start: 20171124
  4. SENNA                              /00142201/ [Concomitant]
     Active Substance: SENNA LEAF
     Indication: CONSTIPATION
     Dosage: 15 MILLIGRAM
     Route: 048
  5. NALOXEGOL [Concomitant]
     Active Substance: NALOXEGOL
     Indication: DYSPNOEA
     Dosage: 12.5 MILLIGRAM, Q2D
     Route: 048
     Dates: start: 20181222
  6. TRASTUZUMAB EMTANSINE [Suspect]
     Active Substance: ADO-TRASTUZUMAB EMTANSINE
     Dosage: 400 MILLIGRAM, Q3W
     Route: 042
     Dates: start: 20180815
  7. HALOPERIDOL. [Concomitant]
     Active Substance: HALOPERIDOL
     Indication: NAUSEA
     Dosage: 1.5 MILLIGRAM
     Route: 048
  8. LORAZEPAM. [Concomitant]
     Active Substance: LORAZEPAM
     Indication: ANXIETY
     Dosage: 0.5 MILLIGRAM
     Route: 048
  9. METHADONE [Concomitant]
     Active Substance: METHADONE HYDROCHLORIDE
     Indication: PAIN
     Dosage: 20 MILLIGRAM, QD
     Route: 048
  10. MIRTAZAPINE. [Concomitant]
     Active Substance: MIRTAZAPINE
     Indication: DEPRESSION
     Dosage: 30 MILLIGRAM
     Route: 048
  11. PERTUZUMAB. [Suspect]
     Active Substance: PERTUZUMAB
     Dosage: 420 MILLIGRAM, Q3W
     Route: 042
     Dates: start: 20170327, end: 20171129
  12. DOMPERIDONE                        /00498202/ [Concomitant]
     Active Substance: DOMPERIDONE MALEATE
     Indication: NAUSEA
     Dosage: 30 MILLIGRAM, QD
     Route: 048
  13. ANIDULAFUNGIN [Concomitant]
     Active Substance: ANIDULAFUNGIN
     Indication: FUNGAL INFECTION
     Dosage: 100 MILLIGRAM
     Route: 042
     Dates: end: 20180929
  14. LAXIDO [Concomitant]
     Active Substance: POLYETHYLENE GLYCOL 3350\POTASSIUM CHLORIDE\SODIUM BICARBONATE\SODIUM CHLORIDE
     Indication: CONSTIPATION
     Dosage: 2 DOSAGE FORM, QD
     Route: 048
  15. OSELTAMIVIR [Concomitant]
     Active Substance: OSELTAMIVIR
     Indication: INFLUENZA
     Dosage: 150 MILLIGRAM, QD
     Route: 048
     Dates: start: 20190207, end: 20190212
  16. TRASTUZUMAB EMTANSINE [Suspect]
     Active Substance: ADO-TRASTUZUMAB EMTANSINE
     Dosage: 420 MILLIGRAM, Q3W
     Route: 042
     Dates: start: 20180524, end: 20180725
  17. TRASTUZUMAB EMTANSINE [Suspect]
     Active Substance: ADO-TRASTUZUMAB EMTANSINE
     Dosage: 380 MILLIGRAM, Q3W
     Route: 042
     Dates: start: 20181203, end: 20181203
  18. METOCLOPRAMIDE. [Concomitant]
     Active Substance: METOCLOPRAMIDE
     Indication: MALAISE
     Dosage: 10 MILLIGRAM
     Route: 065
  19. MAGNESIUM GLYCEROPHOSPHATE [Concomitant]
     Active Substance: MAGNESIUM GLYCEROPHOSPHATE
     Indication: HYPOMAGNESAEMIA
     Dosage: 3 DOSAGE FORM, QD
     Route: 048
  20. CIPROFLOXACIN. [Concomitant]
     Active Substance: CIPROFLOXACIN
     Indication: DYSPNOEA
     Dosage: 1000 MILLIGRAM, QD
     Route: 048
     Dates: start: 20190102, end: 20190108
  21. CITALOPRAM [Concomitant]
     Active Substance: CITALOPRAM HYDROBROMIDE
     Indication: ANXIETY
     Dosage: 20 MILLIGRAM, QD
     Route: 048
     Dates: start: 20190226
  22. DOCETAXEL. [Suspect]
     Active Substance: DOCETAXEL
     Indication: BREAST CANCER
     Dosage: 150 MILLIGRAM, Q3W
     Route: 042
     Dates: start: 20170303, end: 20170303
  23. TRASTUZUMAB EMTANSINE [Suspect]
     Active Substance: ADO-TRASTUZUMAB EMTANSINE
     Indication: BREAST CANCER
     Dosage: 460 MILLIGRAM, Q3W
     Route: 042
     Dates: start: 20171218
  24. LANSOPRAZOLE. [Concomitant]
     Active Substance: LANSOPRAZOLE
     Indication: DYSPEPSIA
     Dosage: 30 MILLIGRAM
     Route: 065
     Dates: start: 201703
  25. ORAMORPH [Concomitant]
     Active Substance: MORPHINE SULFATE
     Indication: PAIN
     Dosage: 10 MILLIGRAM
     Route: 065
     Dates: start: 20171001
  26. ZOPICLONE [Concomitant]
     Active Substance: ZOPICLONE
     Indication: INSOMNIA
     Dosage: 7.5 MILLIGRAM
     Route: 048
  27. GABAPENTIN. [Concomitant]
     Active Substance: GABAPENTIN
     Indication: PAIN
     Dosage: 200 MILLIGRAM
     Route: 048
     Dates: end: 20180611
  28. DEXAMETHASONE. [Concomitant]
     Active Substance: DEXAMETHASONE
     Indication: BACK PAIN
     Dosage: 8 MILLIGRAM, QD
     Route: 048
     Dates: start: 20190131, end: 20190209
  29. TRASTUZUMAB. [Suspect]
     Active Substance: TRASTUZUMAB
     Dosage: 819 MILLIGRAM, Q3W
     Route: 042
     Dates: start: 20170324, end: 20170509
  30. TRASTUZUMAB. [Suspect]
     Active Substance: TRASTUZUMAB
     Dosage: 798 MILLIGRAM, Q3W
     Route: 042
     Dates: start: 20170606, end: 20171108
  31. PERTUZUMAB. [Suspect]
     Active Substance: PERTUZUMAB
     Indication: BREAST CANCER
     Dosage: 840 MILLIGRAM, Q3W
     Route: 042
     Dates: start: 20170303, end: 20170303
  32. PERINDOPRIL [Concomitant]
     Active Substance: PERINDOPRIL
     Dosage: 8 MILLIGRAM
     Route: 065
  33. DOXAZOSIN [Concomitant]
     Active Substance: DOXAZOSIN MESYLATE
     Indication: PRODUCT USED FOR UNKNOWN INDICATION
     Dosage: 4 MILLIGRAM
     Route: 065
  34. DOXYCYCLINE. [Concomitant]
     Active Substance: DOXYCYCLINE
     Dosage: UNK
     Route: 065
     Dates: start: 20180822, end: 20180828
  35. ANIDULAFUNGIN [Concomitant]
     Active Substance: ANIDULAFUNGIN
     Indication: DYSPNOEA
     Dosage: 200 MILLIGRAM, QD
     Route: 042
     Dates: start: 20181223, end: 20181227
  36. VORICONAZOLE. [Concomitant]
     Active Substance: VORICONAZOLE
     Indication: FUNGAL INFECTION
     Dosage: 400 MILLIGRAM, QD
     Route: 048
     Dates: end: 20181015
  37. DOCUSATE SODIUM. [Concomitant]
     Active Substance: DOCUSATE SODIUM
     Dosage: 200 MILLIGRAM
     Route: 048
  38. TRASTUZUMAB. [Suspect]
     Active Substance: TRASTUZUMAB
     Indication: BREAST CANCER
     Dosage: 1092 MILLIGRAM, Q3W
     Route: 042
     Dates: start: 20170303, end: 20170303
  39. MORPHINE [Concomitant]
     Active Substance: MORPHINE
     Indication: PAIN
     Dosage: 15 MILLIGRAM
     Route: 065
     Dates: start: 201702
  40. DOXYCYCLINE. [Concomitant]
     Active Substance: DOXYCYCLINE
     Indication: LOWER RESPIRATORY TRACT INFECTION
     Dosage: UNK
  41. DEXAMETHASONE. [Concomitant]
     Active Substance: DEXAMETHASONE
     Indication: DYSPNOEA
     Dosage: 2 MILLIGRAM, QD
     Route: 048
     Dates: start: 20190103, end: 20190117
  42. PREGABALIN. [Concomitant]
     Active Substance: PREGABALIN
     Indication: BACK PAIN
     Dosage: 100 MILLIGRAM, QD
     Route: 048
     Dates: start: 20190207, end: 20190221

REACTIONS (8)
  - Pneumonia [Recovered/Resolved with Sequelae]
  - Body temperature increased [Recovered/Resolved]
  - Lower respiratory tract infection [Recovered/Resolved]
  - Abdominal pain upper [Recovered/Resolved with Sequelae]
  - Influenza [Recovered/Resolved with Sequelae]
  - Lethargy [Recovered/Resolved with Sequelae]
  - Pyrexia [Recovered/Resolved with Sequelae]
  - Nausea [Recovered/Resolved with Sequelae]

NARRATIVE: CASE EVENT DATE: 20180527
